FAERS Safety Report 22656730 (Version 1)
Quarter: 2023Q2

REPORT INFORMATION
  Report Type: Spontaneous
  Country: US (occurrence: US)
  Receive Date: 20230630
  Receipt Date: 20230630
  Transmission Date: 20230721
  Serious: Yes (Other)
  Sender: FDA-Public Use
  Company Number: US-UNITED THERAPEUTICS-UNT-2023-013259

PATIENT
  Age: 1 Year
  Sex: Female
  Weight: 2.721 kg

DRUGS (45)
  1. REMODULIN [Suspect]
     Active Substance: TREPROSTINIL
     Indication: Pulmonary arterial hypertension
     Dosage: UNK (DOSE INCREASED), CONTINUING
     Route: 058
     Dates: start: 20230117
  2. REMODULIN [Suspect]
     Active Substance: TREPROSTINIL
     Dosage: UNK, CONTINUING
     Route: 058
     Dates: start: 20230118
  3. REMODULIN [Suspect]
     Active Substance: TREPROSTINIL
     Dosage: 0.028 ?G/KG (AT A DOSING WEIGHT OF 9.3 KG), CONTINUING
     Route: 058
     Dates: start: 20230307
  4. REMODULIN [Suspect]
     Active Substance: TREPROSTINIL
     Dosage: UNK, CONTINUING
     Route: 058
  5. MORPHINE [Suspect]
     Active Substance: MORPHINE
     Indication: Product used for unknown indication
     Dosage: 6.8 MG, Q4H
     Route: 065
  6. MORPHINE [Suspect]
     Active Substance: MORPHINE
     Dosage: 6.8 MG, Q6H
     Route: 065
     Dates: end: 20230429
  7. MORPHINE [Suspect]
     Active Substance: MORPHINE
     Dosage: 3.75 MG
     Route: 065
     Dates: start: 20230512
  8. MORPHINE [Suspect]
     Active Substance: MORPHINE
     Dosage: 3 MG
     Route: 041
     Dates: start: 20230522
  9. MORPHINE [Suspect]
     Active Substance: MORPHINE
     Dosage: 7.5 MG, Q4H
     Route: 048
     Dates: start: 20230526
  10. AZITHROMYCIN [Suspect]
     Active Substance: AZITHROMYCIN
     Indication: Product used for unknown indication
     Dosage: 10 MG/KG (DOSING WEIGHT), ONE TIME DOSE (TUE, THU, SAT)
     Route: 065
     Dates: end: 2023
  11. LEVALBUTEROL [Concomitant]
     Active Substance: LEVALBUTEROL
     Indication: Product used for unknown indication
     Dosage: 0.63 MG, ONE TIME DOSE
     Route: 065
  12. LEVALBUTEROL [Concomitant]
     Active Substance: LEVALBUTEROL
     Dosage: 0.63 MG, TID
     Route: 065
  13. LEVALBUTEROL [Concomitant]
     Active Substance: LEVALBUTEROL
     Dosage: 0.63 MG, Q4H (PRN)
     Route: 065
  14. EPOPROSTENOL [Concomitant]
     Active Substance: EPOPROSTENOL
     Indication: Pulmonary arterial hypertension
     Dosage: UNK UNK, CONTINUING
     Route: 065
  15. EPOPROSTENOL [Concomitant]
     Active Substance: EPOPROSTENOL
     Dosage: 0.012 ?G/KG, CONTINUING
     Route: 065
  16. POTASSIUM CHLORIDE [Concomitant]
     Active Substance: POTASSIUM CHLORIDE
     Indication: Product used for unknown indication
     Dosage: 20 MEQ, TID
     Route: 065
  17. BUMEX [Concomitant]
     Active Substance: BUMETANIDE
     Indication: Product used for unknown indication
     Dosage: 1 MG, Q8H (TID) (PER J TUBE PORT)
     Route: 048
  18. BUMEX [Concomitant]
     Active Substance: BUMETANIDE
     Dosage: 0.9 MG, TID (PER J TUBE PORT)
     Route: 048
  19. BUMEX [Concomitant]
     Active Substance: BUMETANIDE
     Dosage: 0.8 MG, TID (PER J TUBE PORT)
     Route: 048
  20. ACETAMINOPHEN [Concomitant]
     Active Substance: ACETAMINOPHEN
     Indication: Product used for unknown indication
     Dosage: 15 MG/KG (DOSING WEIGHT), Q6H (PRN)
     Route: 065
  21. SODIUM CHLORIDE [Concomitant]
     Active Substance: SODIUM CHLORIDE
     Indication: Product used for unknown indication
     Dosage: 1-30 ML, PRN
     Route: 065
  22. SODIUM CHLORIDE [Concomitant]
     Active Substance: SODIUM CHLORIDE
     Dosage: 2 ML, BED TIME
     Route: 065
  23. SODIUM CHLORIDE [Concomitant]
     Active Substance: SODIUM CHLORIDE
     Dosage: 25 ML, PRN
     Route: 065
  24. VALIUM [Concomitant]
     Active Substance: DIAZEPAM
     Indication: Product used for unknown indication
     Dosage: 2 MG, Q6H (PRN)
     Route: 065
  25. VALIUM [Concomitant]
     Active Substance: DIAZEPAM
     Dosage: 4.2, Q6H (PRN)
     Route: 065
     Dates: end: 20230601
  26. BETHANECHOL [Concomitant]
     Active Substance: BETHANECHOL
     Indication: Product used for unknown indication
     Dosage: 0.3 MG/KG (DOSING WEIGHT), BID
     Route: 065
  27. MAGNESIUM HYDROXIDE [Concomitant]
     Active Substance: MAGNESIUM HYDROXIDE
     Indication: Product used for unknown indication
     Dosage: 4 ML, BID
     Route: 065
  28. SPIRONOLACTONE [Concomitant]
     Active Substance: SPIRONOLACTONE
     Indication: Product used for unknown indication
     Dosage: 1.5 MG/KG (DOSING WIGHT), BID
     Route: 065
  29. IBUPROFEN [Concomitant]
     Active Substance: IBUPROFEN
     Indication: Product used for unknown indication
     Dosage: 10 MG/KG (DOSING WEIGHT), Q6H (PRN)
     Route: 065
  30. ESOMEPRAZOLE [Concomitant]
     Active Substance: ESOMEPRAZOLE
     Indication: Product used for unknown indication
     Dosage: 10 MG, QD
     Route: 048
  31. LIDOCAINE [Concomitant]
     Active Substance: LIDOCAINE
     Indication: Product used for unknown indication
     Dosage: 0.2 ML (TRANSPARENT DRESSING 4% KIT 1 TUBE), PRN
     Route: 065
  32. TADALAFIL [Concomitant]
     Active Substance: TADALAFIL
     Indication: Pulmonary hypertension
     Dosage: 10 MG (DOSING WEIGHT 9.07 KG), QD
     Route: 048
  33. ALTEPLASE [Concomitant]
     Active Substance: ALTEPLASE
     Indication: Product used for unknown indication
     Dosage: 2 MG, PRN
     Route: 065
  34. MELATONIN [Concomitant]
     Active Substance: MELATONIN
     Indication: Product used for unknown indication
     Dosage: 1 MG, QD PRN
     Route: 048
  35. CLONIDINE [Concomitant]
     Active Substance: CLONIDINE
     Indication: Product used for unknown indication
     Dosage: 35 ?G, Q6H
     Route: 065
  36. CLONIDINE [Concomitant]
     Active Substance: CLONIDINE
     Dosage: 36 ?G, Q6H
     Route: 065
     Dates: end: 20230601
  37. FERROUS SULFATE [Concomitant]
     Active Substance: FERROUS SULFATE
     Indication: Product used for unknown indication
     Dosage: 1.5 MG/KG (DOSING WEIGHT), BID
     Route: 065
  38. ATROVENT [Concomitant]
     Active Substance: IPRATROPIUM BROMIDE
     Indication: Product used for unknown indication
     Dosage: 0.2% FOR AEROSOL 125 ?G, Q12H
     Route: 065
  39. PULMICORT TURBUHALER [Concomitant]
     Active Substance: BUDESONIDE
     Indication: Product used for unknown indication
     Dosage: AEROSOL 0.5 MG, BID
     Route: 065
  40. HYDROCORTISONE [Concomitant]
     Active Substance: HYDROCORTISONE
     Indication: Product used for unknown indication
     Dosage: UNK, PRN
     Route: 065
  41. VITAMIN D3 [Concomitant]
     Active Substance: CHOLECALCIFEROL
     Indication: Product used for unknown indication
     Dosage: 400 IU, QD
     Route: 065
  42. GLYCERIN [Concomitant]
     Active Substance: GLYCERIN
     Indication: Product used for unknown indication
     Dosage: 0.5, PRN
     Route: 065
  43. TOBRAMYCIN [Concomitant]
     Active Substance: TOBRAMYCIN
     Indication: Product used for unknown indication
     Dosage: UNK
     Route: 065
  44. SILDENAFIL [Concomitant]
     Active Substance: SILDENAFIL
     Indication: Pulmonary hypertension
     Dosage: UNK
     Route: 065
  45. BOSENTAN [Concomitant]
     Active Substance: BOSENTAN
     Indication: Pulmonary hypertension
     Dosage: UNK
     Route: 065
     Dates: end: 20230503

REACTIONS (9)
  - Acute kidney injury [Unknown]
  - Diarrhoea [Unknown]
  - Hypernatraemia [Unknown]
  - Infant irritability [Unknown]
  - Weight decreased [Recovering/Resolving]
  - Vomiting [Unknown]
  - Pyrexia [Recovered/Resolved]
  - Oxygen saturation decreased [Recovered/Resolved]
  - Pleural effusion [Unknown]

NARRATIVE: CASE EVENT DATE: 20230430
